FAERS Safety Report 7171934-2 (Version None)
Quarter: 2010Q4

REPORT INFORMATION
  Report Type: 
  Country: None (occurrence: None)
  Receive Date: 20101217
  Receipt Date: 20101209
  Transmission Date: 20110411
  Serious: Yes (Other)
  Sender: FDA-Public Use
  Company Number: US-MERCK-1008USA00274

PATIENT
  Age: 51 Year
  Sex: Female

DRUGS (3)
  1. FOSAMAX [Suspect]
     Indication: OSTEOPENIA
     Route: 048
     Dates: start: 19960801, end: 20090305
  2. FOSAMAX [Suspect]
     Route: 048
     Dates: start: 19960801, end: 20090305
  3. PAXIL [Concomitant]
     Indication: HOT FLUSH
     Route: 065
     Dates: start: 19920101

REACTIONS (10)
  - AMNESIA [None]
  - ANXIETY [None]
  - FALL [None]
  - FEMUR FRACTURE [None]
  - FRACTURE NONUNION [None]
  - LACERATION [None]
  - OSTEOPOROSIS [None]
  - STRESS [None]
  - TOOTH DISORDER [None]
  - TOOTH FRACTURE [None]
